FAERS Safety Report 7625238-1 (Version None)
Quarter: 2011Q3

REPORT INFORMATION
  Report Type: 
  Country: None (occurrence: None)
  Receive Date: 20110713
  Receipt Date: 20110628
  Transmission Date: 20111222
  Serious: Yes (Other)
  Sender: FDA-Public Use
  Company Number: 2011MA008232

PATIENT
  Age: 55 Year
  Sex: Male

DRUGS (2)
  1. ASPIRIN [Suspect]
     Indication: MYOCARDIAL INFARCTION
     Dates: start: 20060401
  2. TICLOPIDINE HYDROCHLORIDE [Suspect]
     Indication: MYOCARDIAL INFARCTION
     Dosage: 200 MG, QD
     Dates: start: 20060401

REACTIONS (7)
  - APLASTIC ANAEMIA [None]
  - VIITH NERVE INJURY [None]
  - DIARRHOEA [None]
  - PLATELET COUNT DECREASED [None]
  - NEUROBORRELIOSIS [None]
  - VIITH NERVE PARALYSIS [None]
  - WHITE BLOOD CELL COUNT DECREASED [None]
